FAERS Safety Report 10188044 (Version 1)
Quarter: 2014Q2

REPORT INFORMATION
  Report Type: Spontaneous
  Country: US (occurrence: US)
  Receive Date: 20140522
  Receipt Date: 20140522
  Transmission Date: 20141212
  Serious: No
  Sender: FDA-Public Use
  Company Number: US-SA-2013SA106072

PATIENT
  Sex: Male

DRUGS (3)
  1. LANTUS SOLOSTAR [Suspect]
     Indication: TYPE 2 DIABETES MELLITUS
     Dosage: TAKEN FROM- ONE MONTH AGO DOSE:10 UNIT(S)
     Route: 051
  2. METFORMIN [Suspect]
     Route: 065
  3. SOLOSTAR [Concomitant]
     Indication: TYPE 2 DIABETES MELLITUS
     Dosage: TAKEN FROM- ONE MONTH AGO

REACTIONS (3)
  - Pruritus [Recovered/Resolved]
  - Condition aggravated [Recovered/Resolved]
  - Blood glucose increased [Not Recovered/Not Resolved]
